FAERS Safety Report 17889331 (Version 7)
Quarter: 2020Q3

REPORT INFORMATION
  Report Type: Report from Study
  Country: US (occurrence: US)
  Receive Date: 20200612
  Receipt Date: 20200916
  Transmission Date: 20201103
  Serious: Yes (Hospitalization)
  Sender: FDA-Public Use
  Company Number: NVSC2020US162858

PATIENT
  Sex: Female
  Weight: 82.55 kg

DRUGS (2)
  1. COSENTYX [Suspect]
     Active Substance: SECUKINUMAB
     Indication: PSORIASIS
     Dosage: 300 MG, Q4W
     Route: 058
     Dates: start: 20190917
  2. COSENTYX [Suspect]
     Active Substance: SECUKINUMAB
     Route: 058

REACTIONS (14)
  - Hypotension [Recovering/Resolving]
  - Pain [Recovering/Resolving]
  - Weight decreased [Recovering/Resolving]
  - Abdominal pain upper [Recovering/Resolving]
  - Intestinal mass [Unknown]
  - Infection [Unknown]
  - Cardiac failure congestive [Recovering/Resolving]
  - Gastritis [Recovering/Resolving]
  - Eating disorder [Recovering/Resolving]
  - Psoriasis [Unknown]
  - Dyspnoea [Recovering/Resolving]
  - Cardiac disorder [Unknown]
  - Pancreatitis [Recovering/Resolving]
  - Drug ineffective [Recovering/Resolving]
